FAERS Safety Report 9437012 (Version 1)
Quarter: 2013Q3

REPORT INFORMATION
  Report Type: Spontaneous
  Country: US (occurrence: US)
  Receive Date: 20130802
  Receipt Date: 20130802
  Transmission Date: 20140515
  Serious: Yes (Other)
  Sender: FDA-Public Use
  Company Number: US-TEVA-422527USA

PATIENT
  Age: 25 Year
  Sex: Female

DRUGS (3)
  1. CLOMIPRAMINE [Suspect]
     Route: 065
  2. ESCITALOPRAM [Interacting]
     Route: 065
  3. KETAMINE [Interacting]
     Route: 041

REACTIONS (11)
  - Drug interaction [Recovered/Resolved]
  - Suicidal ideation [Recovered/Resolved]
  - Dysphoria [Recovered/Resolved]
  - Anxiety [Recovered/Resolved]
  - Derealisation [Unknown]
  - Tearfulness [Unknown]
  - Attention-seeking behaviour [Unknown]
  - Illusion [Unknown]
  - Parosmia [Unknown]
  - Dysgeusia [Unknown]
  - Trichotillomania [Unknown]
